FAERS Safety Report 4620038-9 (Version None)
Quarter: 2005Q1

REPORT INFORMATION
  Report Type: 
  Country: None (occurrence: None)
  Receive Date: 20050322
  Receipt Date: 20050322
  Transmission Date: 20050727
  Serious: Yes (Other)
  Sender: FDA-Public Use
  Company Number: None

PATIENT
  Age: 48 Year
  Sex: Male
  Weight: 117.9352 kg

DRUGS (1)
  1. ZOLOFT [Suspect]
     Indication: DEPRESSION
     Dosage: 20MG 3 DAYS    50MG ONE DAY    ORAL
     Route: 048
     Dates: start: 20031126, end: 20031128

REACTIONS (2)
  - ABNORMAL BEHAVIOUR [None]
  - ANGER [None]
